FAERS Safety Report 8055110-7 (Version None)
Quarter: 2011Q4

REPORT INFORMATION
  Report Type: 
  Country: None (occurrence: None)
  Receive Date: 20111213
  Receipt Date: 20110824
  Transmission Date: 20120403
  Serious: No
  Sender: FDA-Public Use
  Company Number: 2011SP040133

PATIENT
  Age: 48 Year
  Sex: Female

DRUGS (2)
  1. SAPHRIS [Suspect]
     Indication: BIPOLAR DISORDER
     Dosage: 10 MG; QD; SL
     Route: 060
     Dates: start: 20110511, end: 20110528
  2. SEROQUEL [Concomitant]

REACTIONS (2)
  - THERAPEUTIC PRODUCT INEFFECTIVE [None]
  - INAPPROPRIATE SCHEDULE OF DRUG ADMINISTRATION [None]
